FAERS Safety Report 25812340 (Version 2)
Quarter: 2025Q4

REPORT INFORMATION
  Report Type: Spontaneous
  Country: US (occurrence: US)
  Receive Date: 20250917
  Receipt Date: 20251028
  Transmission Date: 20260118
  Serious: Yes (Other)
  Sender: SANDOZ
  Company Number: US-SANDOZ-SDZ2025US067202

PATIENT
  Sex: Female

DRUGS (1)
  1. ALPRAZOLAM [Suspect]
     Active Substance: ALPRAZOLAM
     Indication: Product used for unknown indication
     Dosage: DOSAGE STRENGTH: 1 MG,1 TABLET EVERY NIGHT
     Route: 065

REACTIONS (9)
  - Illness [Unknown]
  - Dyspnoea [Unknown]
  - Dysphagia [Unknown]
  - Dizziness [Unknown]
  - Neuralgia [Unknown]
  - Feeling abnormal [Unknown]
  - Somnolence [Unknown]
  - Product dispensing error [Unknown]
  - Product administration error [Unknown]

NARRATIVE: CASE EVENT DATE: 20250908
